FAERS Safety Report 6169239-1 (Version None)
Quarter: 2009Q2

REPORT INFORMATION
  Report Type: 
  Country: None (occurrence: None)
  Receive Date: 20090424
  Receipt Date: 20090413
  Transmission Date: 20091009
  Serious: Yes (Hospitalization)
  Sender: FDA-Public Use
  Company Number: 2009000831

PATIENT
  Sex: Male
  Weight: 92.3524 kg

DRUGS (5)
  1. ERLOTINIB / PLACEBO (ERLOTINIB HCL) (TABLET) (ERLOTINIB HCL) [Suspect]
     Indication: LUNG NEOPLASM MALIGNANT
     Dosage: (100 MG, QD),ORAL; (50 MG, QD), ORAL
     Route: 048
     Dates: start: 20090122, end: 20090312
  2. PROTONIX [Concomitant]
  3. SIMVASTATIN [Concomitant]
  4. ALLI [Concomitant]
  5. VIAGRA [Concomitant]

REACTIONS (7)
  - BLOOD ALBUMIN DECREASED [None]
  - CARDIOMEGALY [None]
  - MITRAL VALVE INCOMPETENCE [None]
  - PERICARDIAL EFFUSION [None]
  - PULMONARY VALVE INCOMPETENCE [None]
  - QRS AXIS ABNORMAL [None]
  - TRICUSPID VALVE INCOMPETENCE [None]
